FAERS Safety Report 16334344 (Version 2)
Quarter: 2019Q2

REPORT INFORMATION
  Report Type: Spontaneous
  Country: US (occurrence: US)
  Receive Date: 20190520
  Receipt Date: 20190627
  Transmission Date: 20190711
  Serious: Yes (Hospitalization)
  Sender: FDA-Public Use
  Company Number: US-NEXGEN PHARMA, INC.-2067222

PATIENT
  Age: 42 Year
  Sex: Female

DRUGS (1)
  1. CHENODAL [Suspect]
     Active Substance: CHENODIOL
     Indication: LIPIDS ABNORMAL
     Route: 048
     Dates: start: 20141214

REACTIONS (5)
  - Infection [None]
  - Hypotension [None]
  - Surgery [Unknown]
  - Pyrexia [None]
  - Blood glucose decreased [None]
